FAERS Safety Report 5507344-0 (Version None)
Quarter: 2007Q4

REPORT INFORMATION
  Report Type: 
  Country: None (occurrence: None)
  Receive Date: 20071102
  Receipt Date: 20071018
  Transmission Date: 20080405
  Serious: Yes (Hospitalization)
  Sender: FDA-Public Use
  Company Number: 163120ISR

PATIENT
  Age: 39 Year
  Sex: Female

DRUGS (2)
  1. CIPROFLOXACIN [Suspect]
     Dosage: 1000 MG (500 MG, 2 IN 1 D)
  2. TYGACIL [Suspect]
     Indication: OSTEOMYELITIS
     Dosage: 100 MG (50 MG, 2 IN 1 D)
     Dates: start: 20070910

REACTIONS (1)
  - MOUTH ULCERATION [None]
